FAERS Safety Report 5845123-5 (Version None)
Quarter: 2008Q3

REPORT INFORMATION
  Report Type: 
  Country: None (occurrence: None)
  Receive Date: 20080813
  Receipt Date: 20080813
  Transmission Date: 20090109
  Serious: Yes (Hospitalization)
  Sender: FDA-Public Use
  Company Number: None

PATIENT
  Sex: Male
  Weight: 97.6 kg

DRUGS (3)
  1. CYCLOPHOSPHAMIDE [Suspect]
     Dosage: 2520 MG
  2. PENTOSTATIN [Suspect]
     Dosage: 16.8 MG
  3. RITUXIMAB (MOAB C2B8 ANTI CD20, CHIMERIC) [Suspect]
     Dosage: 2470 MG

REACTIONS (12)
  - ACUTE RESPIRATORY DISTRESS SYNDROME [None]
  - ALANINE AMINOTRANSFERASE INCREASED [None]
  - ASPARTATE AMINOTRANSFERASE INCREASED [None]
  - BLOOD CALCIUM DECREASED [None]
  - BLOOD PRESSURE SYSTOLIC DECREASED [None]
  - CHRONIC LYMPHOCYTIC LEUKAEMIA [None]
  - CONFUSIONAL STATE [None]
  - DIARRHOEA [None]
  - FAECAL INCONTINENCE [None]
  - IMMUNOSUPPRESSION [None]
  - RENAL FAILURE [None]
  - SEPSIS SYNDROME [None]
